FAERS Safety Report 8708842 (Version 2)
Quarter: 2012Q4

REPORT INFORMATION
  Report Type: 
  Country: US (occurrence: US)
  Receive Date: 20120806
  Receipt Date: 20120926
  Transmission Date: 20130627
  Serious: Yes (Hospitalization, Other)
  Sender: FDA-Public Use
  Company Number: US-BAYER-2012-076709

PATIENT
  Age: 48 Year
  Sex: Female
  Weight: 65.76 kg

DRUGS (8)
  1. YASMIN [Suspect]
     Indication: CONTRACEPTION
     Dosage: UNK
     Dates: start: 200203, end: 200807
  2. OCELLA [Suspect]
     Indication: CONTRACEPTION
     Dosage: UNK
     Dates: start: 200807, end: 201008
  3. LEVOTHYROXINE [Concomitant]
     Dosage: 25 mcg
     Dates: start: 20100520
  4. LEVOTHYROXINE [Concomitant]
     Dosage: UNK
     Dates: start: 20100731
  5. LEVOTHYROXINE [Concomitant]
     Dosage: UNK
     Dates: start: 2010, end: 2011
  6. VOLTAREN [DICLOFENAC SODIUM] [Concomitant]
     Dosage: 75 mg, BID
     Dates: start: 20100630
  7. SYNTHROID [Concomitant]
     Dosage: 25 mcg daily
  8. EXCEDRIN MIGRAINE [Concomitant]
     Indication: MIGRAINE
     Dosage: UNK
     Dates: start: 1999

REACTIONS (8)
  - Cholelithiasis [None]
  - Acute myocardial infarction [None]
  - Pulmonary embolism [None]
  - Dyspnoea [None]
  - Chest pain [None]
  - Nausea [None]
  - Hyperhidrosis [None]
  - Pulmonary embolism [None]
